FAERS Safety Report 6077603-4 (Version None)
Quarter: 2009Q1

REPORT INFORMATION
  Report Type: 
  Country: None (occurrence: None)
  Receive Date: 20090213
  Receipt Date: 20090211
  Transmission Date: 20090719
  Serious: Yes (Hospitalization)
  Sender: FDA-Public Use
  Company Number: US-ASTRAZENECA-2009UW03965

PATIENT
  Age: 816 Month
  Sex: Female
  Weight: 95.3 kg

DRUGS (1)
  1. SEROQUEL [Suspect]
     Dosage: TOOK SEROQUEL FOR MANY YEARS AND SWITCHED TO SEROQUEL XL SOMETIME AROUND 11-FEB-2009
     Route: 048

REACTIONS (5)
  - BLOOD URINE PRESENT [None]
  - CARDIAC DISORDER [None]
  - CATHETERISATION CARDIAC [None]
  - NASOPHARYNGITIS [None]
  - RENAL DISORDER [None]
